FAERS Safety Report 7308520-7 (Version None)
Quarter: 2011Q1

REPORT INFORMATION
  Report Type: 
  Country: None (occurrence: None)
  Receive Date: 20110223
  Receipt Date: 20101217
  Transmission Date: 20110831
  Serious: Yes (Hospitalization, Other)
  Sender: FDA-Public Use
  Company Number: US-BAYER-201017169NA

PATIENT
  Sex: Female
  Weight: 81.818 kg

DRUGS (10)
  1. YASMIN [Suspect]
     Indication: CONTRACEPTION
     Dosage: PHARMACY RECORDS: 26-FEB2007
     Route: 048
     Dates: start: 20070201
  2. YASMIN [Suspect]
     Indication: PREMENSTRUAL SYNDROME
  3. TRILYTE [Concomitant]
  4. OCELLA [Suspect]
     Route: 048
  5. YAZ [Suspect]
     Indication: PREMENSTRUAL SYNDROME
  6. CLIDINIUM [Concomitant]
  7. YAZ [Suspect]
     Indication: CONTRACEPTION
     Dosage: PHARMACY RECORDS: 17-SEP-2007 TO 02-JAN-2008
     Route: 048
     Dates: start: 20070901, end: 20080101
  8. PROPOXYPHENE NAPSYLATE W/ ACETAMINOPHEN [Concomitant]
  9. MOTRIN [Concomitant]
     Indication: PRODUCT USED FOR UNKNOWN INDICATION
     Dosage: UNK
  10. METOCLOPRAMIDE HCL [Concomitant]

REACTIONS (15)
  - VOMITING [None]
  - DIZZINESS [None]
  - FATIGUE [None]
  - NAUSEA [None]
  - HAEMANGIOMA OF LIVER [None]
  - DEHYDRATION [None]
  - CHOLELITHIASIS [None]
  - ABDOMINAL PAIN [None]
  - DIARRHOEA [None]
  - CHOLECYSTITIS CHRONIC [None]
  - WEIGHT DECREASED [None]
  - BILIARY DILATATION [None]
  - HEPATIC STEATOSIS [None]
  - DYSPNOEA [None]
  - PANCREATITIS [None]
